FAERS Safety Report 8323114-2 (Version None)
Quarter: 2012Q2

REPORT INFORMATION
  Report Type: 
  Country: None (occurrence: None)
  Receive Date: 20120430
  Receipt Date: 20120423
  Transmission Date: 20120825
  Serious: Yes (Life-Threatening, Hospitalization)
  Sender: FDA-Public Use
  Company Number: AU-ROCHE-1043507

PATIENT
  Sex: Female
  Weight: 113.14 kg

DRUGS (6)
  1. FLUTICASONE PROPIONATE/SALMETEROL [Concomitant]
  2. LANTUS [Concomitant]
  3. NOVORAPID [Concomitant]
  4. DIAMICRON [Concomitant]
  5. XOLAIR [Suspect]
     Indication: HYPERSENSITIVITY
     Route: 058
     Dates: start: 20120209, end: 20120209
  6. PANTOPRAZOLE SODIUM [Concomitant]

REACTIONS (2)
  - RASH [None]
  - ANAPHYLACTIC REACTION [None]
